FAERS Safety Report 6903673-4 (Version None)
Quarter: 2010Q3

REPORT INFORMATION
  Report Type: 
  Country: None (occurrence: None)
  Receive Date: 20100803
  Receipt Date: 20081117
  Transmission Date: 20110219
  Serious: Yes (Other)
  Sender: FDA-Public Use
  Company Number: US-PFIZER INC-2008079597

PATIENT
  Sex: Female
  Weight: 50.3 kg

DRUGS (4)
  1. LYRICA [Suspect]
     Indication: CONVULSION PROPHYLAXIS
     Dates: start: 20080715
  2. SUDAFED 12 HOUR [Suspect]
  3. VITAMIN TAB [Concomitant]
  4. DIPHENHYDRAMINE [Concomitant]

REACTIONS (9)
  - BLOOD PRESSURE INCREASED [None]
  - CONVULSION [None]
  - DIZZINESS [None]
  - EAR DISORDER [None]
  - HEART RATE INCREASED [None]
  - TREMOR [None]
  - UNEVALUABLE EVENT [None]
  - VISION BLURRED [None]
  - WEIGHT INCREASED [None]
